FAERS Safety Report 5014282-9 (Version None)
Quarter: 2006Q2

REPORT INFORMATION
  Report Type: 
  Country: None (occurrence: None)
  Receive Date: 20060414
  Receipt Date: 20060104
  Transmission Date: 20061013
  Serious: No
  Sender: FDA-Public Use
  Company Number: 2005SP004362

PATIENT
  Age: 81 Year
  Sex: Female
  Weight: 104.3273 kg

DRUGS (4)
  1. LUNESTA [Suspect]
     Indication: INSOMNIA
     Dosage: MG; HS; ORAL;  4 MG; 1X; ORAL
     Route: 048
     Dates: start: 20050101, end: 20050101
  2. LUNESTA [Suspect]
     Indication: INSOMNIA
     Dosage: MG; HS; ORAL;  4 MG; 1X; ORAL
     Route: 048
     Dates: start: 20051115, end: 20051201
  3. LISINOPRIL [Concomitant]
  4. AMBIEN [Concomitant]

REACTIONS (2)
  - DRUG INEFFECTIVE [None]
  - INITIAL INSOMNIA [None]
